FAERS Safety Report 13379203 (Version 1)
Quarter: 2017Q1

REPORT INFORMATION
  Report Type: Spontaneous
  Country: US (occurrence: US)
  Receive Date: 20170328
  Receipt Date: 20170328
  Transmission Date: 20170429
  Serious: No
  Sender: FDA-Public Use
  Company Number: US-ROCHE-1173400

PATIENT

DRUGS (21)
  1. NEBULIZER (UNKNOWN DRUG) [Concomitant]
  2. NASONEX [Concomitant]
     Active Substance: MOMETASONE FUROATE
     Route: 065
  3. TUMS [Concomitant]
     Active Substance: CALCIUM CARBONATE
  4. URIBEL [Concomitant]
     Active Substance: HYOSCYAMINE SULFATE\METHENAMINE\METHYLENE BLUE\PHENYL SALICYLATE\SODIUM PHOSPHATE, MONOBASIC, MONOHYDRATE
  5. LEVALBUTEROL. [Concomitant]
     Active Substance: LEVALBUTEROL
     Route: 065
  6. ADVAIR HFA [Concomitant]
     Active Substance: FLUTICASONE PROPIONATE\SALMETEROL XINAFOATE
     Dosage: 250/50 MCG
     Route: 065
  7. PATANASE [Concomitant]
     Active Substance: OLOPATADINE HYDROCHLORIDE
     Route: 065
  8. NORFLEX [Concomitant]
     Active Substance: ORPHENADRINE CITRATE
     Route: 065
  9. BENADRYL [Concomitant]
     Active Substance: DIPHENHYDRAMINE HYDROCHLORIDE
     Route: 065
  10. CREON [Concomitant]
     Active Substance: PANCRELIPASE AMYLASE\PANCRELIPASE LIPASE\PANCRELIPASE PROTEASE
  11. SINGULAIR [Concomitant]
     Active Substance: MONTELUKAST SODIUM
     Route: 065
  12. HYDROMORPHONE [Concomitant]
     Active Substance: HYDROMORPHONE
     Route: 065
  13. XANAX [Concomitant]
     Active Substance: ALPRAZOLAM
  14. CARDIZEM [Concomitant]
     Active Substance: DILTIAZEM HYDROCHLORIDE
     Route: 065
  15. ALBUTEROL SULFATE. [Concomitant]
     Active Substance: ALBUTEROL SULFATE
  16. IPRATROPIUM [Concomitant]
     Active Substance: IPRATROPIUM
  17. NEURONTIN [Concomitant]
     Active Substance: GABAPENTIN
     Route: 065
  18. ZANTAC [Concomitant]
     Active Substance: RANITIDINE HYDROCHLORIDE
     Route: 065
  19. CALCIUM SUPPLEMENT [Concomitant]
     Active Substance: CALCIUM
  20. CARBINOXAMINE MALEATE. [Concomitant]
     Active Substance: CARBINOXAMINE MALEATE
     Route: 065
  21. XOLAIR [Suspect]
     Active Substance: OMALIZUMAB
     Indication: PRODUCT USED FOR UNKNOWN INDICATION
     Route: 065
     Dates: start: 20121211

REACTIONS (4)
  - Pneumonia [Unknown]
  - Weight increased [Unknown]
  - Breast enlargement [Unknown]
  - Headache [Unknown]
